FAERS Safety Report 9735471 (Version 1)
Quarter: 2013Q4

REPORT INFORMATION
  Report Type: Spontaneous
  Country: US (occurrence: US)
  Receive Date: 20131206
  Receipt Date: 20131206
  Transmission Date: 20140711
  Serious: No
  Sender: FDA-Public Use
  Company Number: US-GILEAD-2009-0023305

PATIENT
  Sex: Female
  Weight: 97.52 kg

DRUGS (12)
  1. LETAIRIS [Suspect]
     Indication: PULMONARY ARTERIAL HYPERTENSION
     Route: 048
     Dates: start: 20090709, end: 200907
  2. COUMADIN [Concomitant]
  3. LASIX [Concomitant]
  4. DIOVAN [Concomitant]
  5. METOPROLOL [Concomitant]
  6. CADUET [Concomitant]
  7. ALLOPURINOL [Concomitant]
  8. GLIPIZIDE [Concomitant]
  9. PROVENTIL [Concomitant]
  10. SYMBICORT [Concomitant]
  11. POTASSIUM [Concomitant]
  12. METFORMIN [Concomitant]

REACTIONS (2)
  - Local swelling [Unknown]
  - Dyspnoea [Unknown]
